FAERS Safety Report 5735639-4 (Version None)
Quarter: 2008Q2

REPORT INFORMATION
  Report Type: 
  Country: None (occurrence: None)
  Receive Date: 20080512
  Receipt Date: 20080501
  Transmission Date: 20081010
  Serious: Yes (Hospitalization)
  Sender: FDA-Public Use
  Company Number: GB-AMGEN-UK238643

PATIENT
  Sex: Female

DRUGS (17)
  1. PANITUMUMAB [Suspect]
     Indication: COLORECTAL CANCER
     Route: 042
     Dates: start: 20070205
  2. ACETAMINOPHEN [Concomitant]
     Route: 048
     Dates: start: 20061229
  3. DEXAMETHASONE [Concomitant]
     Route: 048
     Dates: start: 20070205, end: 20070913
  4. GRANISETRON HCL [Concomitant]
     Route: 042
     Dates: start: 20070205, end: 20070913
  5. DOXYCYCLINE [Concomitant]
     Route: 048
     Dates: start: 20070212, end: 20070612
  6. ACETAMINOPHEN W/ CODEINE [Concomitant]
     Route: 048
     Dates: start: 20061229
  7. LACTULOSE [Concomitant]
     Route: 048
     Dates: start: 20070208
  8. NASEPTIN [Concomitant]
     Route: 061
     Dates: start: 20070601, end: 20070601
  9. METRONIDAZOLE HCL [Concomitant]
     Route: 048
     Dates: start: 20070626, end: 20070901
  10. FUCIDINE CAP [Concomitant]
     Route: 061
     Dates: start: 20070626, end: 20070901
  11. FLOXACILLIN SODIUM [Concomitant]
     Route: 048
     Dates: start: 20070626, end: 20070702
  12. CHLORAMPHENICOL [Concomitant]
     Route: 047
     Dates: start: 20070601, end: 20070612
  13. LOPERAMIDE HCL [Concomitant]
     Route: 048
     Dates: start: 20070205, end: 20070913
  14. MAGNESIUM SULFATE [Concomitant]
     Route: 042
     Dates: start: 20070626, end: 20070627
  15. OXALIPLATIN [Concomitant]
     Route: 042
     Dates: start: 20070206
  16. FLUOROURACIL [Concomitant]
     Route: 042
     Dates: start: 20070206
  17. LEUCOVORIN CALCIUM [Concomitant]
     Route: 042
     Dates: start: 20070206

REACTIONS (3)
  - DEHYDRATION [None]
  - MALAISE [None]
  - NEUTROPENIA [None]
